FAERS Safety Report 6729477-3 (Version None)
Quarter: 2010Q2

REPORT INFORMATION
  Report Type: 
  Country: None (occurrence: None)
  Receive Date: 20100518
  Receipt Date: 20100506
  Transmission Date: 20101027
  Serious: No
  Sender: FDA-Public Use
  Company Number: US-BIOGENIDEC-2010BI015613

PATIENT
  Age: 47 Year
  Sex: Female

DRUGS (3)
  1. TYSABRI [Suspect]
     Indication: MULTIPLE SCLEROSIS
     Route: 042
     Dates: start: 20050201, end: 20050301
  2. TYSABRI [Suspect]
     Route: 042
     Dates: start: 20070712, end: 20090409
  3. TYSABRI [Suspect]
     Route: 042
     Dates: start: 20090831

REACTIONS (2)
  - GASTRIC NEOPLASM [None]
  - PAIN [None]
